FAERS Safety Report 5992593-8 (Version None)
Quarter: 2008Q4

REPORT INFORMATION
  Report Type: 
  Country: None (occurrence: None)
  Receive Date: 20081211
  Receipt Date: 20080523
  Transmission Date: 20090506
  Serious: No
  Sender: FDA-Public Use
  Company Number: US-AMGEN-KDL281806

PATIENT
  Sex: Female

DRUGS (11)
  1. ENBREL [Suspect]
     Indication: RHEUMATOID ARTHRITIS
     Route: 058
     Dates: start: 20080504
  2. CELEBREX [Concomitant]
  3. DESERIL [Concomitant]
  4. FOLIC ACID [Concomitant]
  5. IMURAN [Concomitant]
  6. OMEPRAZOLE [Concomitant]
  7. PREDNISONE TAB [Concomitant]
  8. SULFASALAZINE [Concomitant]
  9. MIRALAX [Concomitant]
  10. ZYRTEC [Concomitant]
  11. PROCTO-GLYVENOL (NOVARTIS PHARM) [Concomitant]

REACTIONS (4)
  - INJECTION SITE HAEMATOMA [None]
  - INJECTION SITE INFLAMMATION [None]
  - INJECTION SITE RASH [None]
  - INJECTION SITE WARMTH [None]
